FAERS Safety Report 9297459 (Version 1)
Quarter: 2013Q2

REPORT INFORMATION
  Report Type: Spontaneous
  Country: IL (occurrence: IL)
  Receive Date: 20130520
  Receipt Date: 20130520
  Transmission Date: 20140414
  Serious: Yes (Hospitalization)
  Sender: FDA-Public Use
  Company Number: IL-ROCHE-1211476

PATIENT
  Age: 14 Year
  Sex: Female

DRUGS (2)
  1. RIVOTRIL [Suspect]
     Indication: CEREBRAL PALSY
     Dosage: 12-14 DROPS A DAY
     Route: 048
     Dates: start: 20130403
  2. RIVOTRIL [Suspect]
     Route: 048
     Dates: start: 20130517

REACTIONS (2)
  - Convulsion [Recovered/Resolved]
  - Vomiting [Recovered/Resolved]
